FAERS Safety Report 19985886 (Version 15)
Quarter: 2022Q3

REPORT INFORMATION
  Report Type: Spontaneous
  Country: CA (occurrence: CA)
  Receive Date: 20211021
  Receipt Date: 20220810
  Transmission Date: 20221026
  Serious: Yes (Death, Hospitalization, Other)
  Sender: FDA-Public Use
  Company Number: CA-CELLTRION INC.-2021CA014165

PATIENT

DRUGS (20)
  1. INFLECTRA [Suspect]
     Active Substance: INFLIXIMAB-DYYB
     Indication: Crohn^s disease
     Dosage: 1 DF (UNKNOWN DOSE, WEEK 0/GIVEN IN HOSPITAL)
     Route: 042
     Dates: start: 20210714
  2. INFLECTRA [Suspect]
     Active Substance: INFLIXIMAB-DYYB
     Indication: Rheumatoid arthritis
     Dosage: 10 MG/KG WEEK 2, 6 AND THEN EVERY 8 WEEKS
     Route: 042
     Dates: start: 20210728
  3. INFLECTRA [Suspect]
     Active Substance: INFLIXIMAB-DYYB
     Dosage: 10 MG/KG WEEK 2, 6 AND THEN EVERY 8 WEEKS
     Route: 042
     Dates: start: 20210827
  4. INFLECTRA [Suspect]
     Active Substance: INFLIXIMAB-DYYB
     Dosage: 600 MG, RESCUE DOSE, THEN EVERY 4 WEEKS
     Route: 042
     Dates: start: 20211015
  5. INFLECTRA [Suspect]
     Active Substance: INFLIXIMAB-DYYB
     Dosage: 600 MG, RESCUE DOSE, THEN EVERY 4 WEEKS
     Route: 042
     Dates: start: 20211113
  6. INFLECTRA [Suspect]
     Active Substance: INFLIXIMAB-DYYB
     Dosage: 600 MG, RESCUE DOSE, THEN EVERY 4 WEEKS
     Route: 042
     Dates: start: 20220108
  7. INFLECTRA [Suspect]
     Active Substance: INFLIXIMAB-DYYB
     Dosage: 600 MG, RESCUE DOSE, THEN EVERY 4 WEEKS
     Route: 042
     Dates: start: 20220202
  8. INFLECTRA [Suspect]
     Active Substance: INFLIXIMAB-DYYB
     Dosage: 600 MG RESCUE DOSE, THEN EVERY 4 WEEKS
     Route: 042
     Dates: start: 20220303
  9. INFLECTRA [Suspect]
     Active Substance: INFLIXIMAB-DYYB
     Dosage: 600 MG RESCUE DOSE, THEN EVERY 4 WEEKS
     Route: 042
     Dates: start: 20220331
  10. INFLECTRA [Suspect]
     Active Substance: INFLIXIMAB-DYYB
     Dosage: 600 MG RESCUE DOSE, THEN EVERY 4 WEEKS
     Route: 042
     Dates: start: 20220502
  11. INFLECTRA [Suspect]
     Active Substance: INFLIXIMAB-DYYB
     Dosage: 600 MG EVERY 4 WEEKS
     Route: 042
     Dates: start: 20220526
  12. AZATHIOPRINE [Concomitant]
     Active Substance: AZATHIOPRINE
     Dosage: UNK
  13. AZATHIOPRINE [Concomitant]
     Active Substance: AZATHIOPRINE
     Dosage: 100 MG
  14. BUDESONIDE [Concomitant]
     Active Substance: BUDESONIDE
     Dosage: UNK
  15. CLONAZEPAM [Concomitant]
     Active Substance: CLONAZEPAM
     Dosage: 0.5 MG, 2X/DAY
  16. MIRTAZAPINE [Concomitant]
     Active Substance: MIRTAZAPINE
     Dosage: 30 MG, OHS
  17. OXYCODONE [Concomitant]
     Active Substance: OXYCODONE
     Dosage: 10 MG EVERY 4 HOURS
     Route: 065
  18. PREDNISONE [Concomitant]
     Active Substance: PREDNISONE
     Dosage: 5 MG, 3X/ DAY
  19. POLYETHYLENE GLYCOL 3350 [Concomitant]
     Active Substance: POLYETHYLENE GLYCOL 3350
     Dosage: UNK
  20. SOLU-MEDROL [Concomitant]
     Active Substance: METHYLPREDNISOLONE SODIUM SUCCINATE
     Dosage: 30 MG EVERY 24 HRS
     Route: 042

REACTIONS (24)
  - Death [Fatal]
  - Small intestinal obstruction [Recovering/Resolving]
  - Rheumatoid arthritis [Unknown]
  - Therapeutic response shortened [Unknown]
  - Therapy non-responder [Unknown]
  - Arthralgia [Not Recovered/Not Resolved]
  - Condition aggravated [Recovering/Resolving]
  - C-reactive protein increased [Unknown]
  - Constipation [Unknown]
  - Drug level above therapeutic [Unknown]
  - Faecal calprotectin abnormal [Unknown]
  - Fatigue [Recovered/Resolved]
  - Insomnia [Unknown]
  - Nausea [Recovered/Resolved]
  - Oral mucosal eruption [Unknown]
  - Rash [Unknown]
  - Poor venous access [Recovered/Resolved]
  - Fibromyalgia [Unknown]
  - Malaise [Unknown]
  - Inappropriate schedule of product administration [Unknown]
  - Intentional product use issue [Unknown]
  - Off label use [Unknown]
  - Off label use [Unknown]
  - Off label use [Unknown]

NARRATIVE: CASE EVENT DATE: 20210101
